FAERS Safety Report 13096378 (Version 2)
Quarter: 2017Q1

REPORT INFORMATION
  Report Type: Report from Study
  Country: GB (occurrence: GB)
  Receive Date: 20170109
  Receipt Date: 20170113
  Transmission Date: 20170428
  Serious: Yes (Death, Hospitalization, Other)
  Sender: FDA-Public Use
  Company Number: PHFR2017GB000453

PATIENT
  Age: 76 Year
  Sex: Female
  Weight: 130 kg

DRUGS (1)
  1. COSENTYX [Suspect]
     Active Substance: SECUKINUMAB
     Indication: PSORIASIS
     Dosage: 300 MG, UNK
     Route: 065
     Dates: start: 20160104

REACTIONS (8)
  - Fall [Unknown]
  - Left ventricular failure [Fatal]
  - Chronic obstructive pulmonary disease [Fatal]
  - Atrial fibrillation [Fatal]
  - Bronchiectasis [Fatal]
  - Cor pulmonale [Fatal]
  - Personality disorder [Unknown]
  - Acute kidney injury [Fatal]

NARRATIVE: CASE EVENT DATE: 20160830
